FAERS Safety Report 6035252-8 (Version None)
Quarter: 2009Q1

REPORT INFORMATION
  Report Type: 
  Country: None (occurrence: None)
  Receive Date: 20090109
  Receipt Date: 20081223
  Transmission Date: 20090719
  Serious: Yes (Death)
  Sender: FDA-Public Use
  Company Number: IDA-00170

PATIENT
  Age: 40 Year
  Sex: Female

DRUGS (6)
  1. PROPRANOLOL [Suspect]
     Dosage: DAILY, ORAL FORMULATION
     Route: 048
  2. QUETIAPINE FUMARATE [Suspect]
     Dosage: DAILY, ORAL FORMULTION
     Route: 048
  3. OXYCODONE [Suspect]
     Dosage: DAILY, ORAL FORMULATION
     Route: 048
  4. CARISOPRODOL [Suspect]
     Dosage: DAILY, ORAL FORMULATION
     Route: 048
  5. CITALOPRAM HYDROBROMIDE [Suspect]
     Dosage: DAILY, ORAL FORMULATION
     Route: 048
  6. FLUOXETINE [Suspect]
     Dosage: DAILY, ORAL FORMULATION
     Route: 048

REACTIONS (4)
  - CARDIAC ARREST [None]
  - COMPLETED SUICIDE [None]
  - INTENTIONAL DRUG MISUSE [None]
  - RESPIRATORY ARREST [None]
